FAERS Safety Report 6387081-3 (Version None)
Quarter: 2009Q4

REPORT INFORMATION
  Report Type: 
  Country: None (occurrence: None)
  Receive Date: 20091002
  Receipt Date: 20090923
  Transmission Date: 20100525
  Serious: Yes (Hospitalization)
  Sender: FDA-Public Use
  Company Number: US-AVENTIS-200918498US

PATIENT
  Sex: Female

DRUGS (17)
  1. LANTUS [Suspect]
     Dosage: DOSE: 34 U DURING 0 WEEK OF INTRAUTERINE PERIOD
     Route: 064
  2. LANTUS [Suspect]
     Dosage: DOSE: 28 UNITS DURING 14 WEEKS OF INTRAUTERINE PERIOD
     Route: 064
  3. LANTUS [Suspect]
     Dosage: DOSE: 113 U DURING 22 WEEK OF INTRAUTERINE PERIOD
     Route: 064
  4. LANTUS [Suspect]
     Dosage: DOSE: 220 U DURING 29 WEEK OF INTRAUTERINE PERIOD
     Route: 064
  5. LANTUS [Suspect]
     Dosage: DOSE: 247 U DURING 35 WEEK OF INTRAUTERINE PERIOD
     Route: 064
  6. LANTUS [Suspect]
     Dosage: DOSE: 257 U  38 WEEK OF INTRAUTERINE PERIOD
     Route: 064
  7. METFORMIN [Suspect]
     Dosage: DOSE: UNK
     Route: 064
  8. ATORVASTATIN [Suspect]
     Dosage: DOSE: UNK
     Route: 064
  9. METOPROLOL [Suspect]
     Dosage: DOSE: 100 MG DURING PRECONCEPTION , 0 WEEK, 14 WEEK , 35 WEEK AND 38 WEEK OF INTRAUTERINE PERIOD
     Route: 064
  10. METOPROLOL [Suspect]
     Dosage: DOSE: 50 MG DURING 22 WEEK AND 29 WEEK OF INTRAUTERINE PERIOD
     Route: 064
  11. MONOPRIL [Suspect]
     Dosage: DOSE: UNK
     Route: 064
  12. EXENATIDE [Suspect]
     Dosage: DOSE: UNK
     Route: 064
  13. ROSIGLITAZONE [Suspect]
     Dosage: DOSE: UNK
     Route: 064
  14. ASPIRIN [Suspect]
     Dosage: DOSE: UNK
     Route: 064
  15. NITROFURANTOIN [Suspect]
     Dosage: DOSE: UNK
     Route: 064
  16. DILTIAZEM [Concomitant]
     Dosage: DOSE: UNK
     Route: 064
  17. ANTIBIOTICS [Concomitant]
     Dosage: DOSE: UNK
     Route: 064

REACTIONS (3)
  - DRUG EXPOSURE DURING PREGNANCY [None]
  - ENCEPHALOPATHY [None]
  - ESCHERICHIA SEPSIS [None]
